FAERS Safety Report 7598293-5 (Version None)
Quarter: 2011Q3

REPORT INFORMATION
  Report Type: 
  Country: None (occurrence: None)
  Receive Date: 20110708
  Receipt Date: 20110627
  Transmission Date: 20111222
  Serious: Yes (Hospitalization, Other)
  Sender: FDA-Public Use
  Company Number: JP-CELGENEUS-087-21880-10111556

PATIENT
  Sex: Female
  Weight: 39 kg

DRUGS (24)
  1. CONIEL [Concomitant]
     Dosage: 8 MILLIGRAM
     Route: 048
     Dates: start: 20110115
  2. REVLIMID [Suspect]
     Dosage: 15 MILLIGRAM
     Route: 048
     Dates: start: 20101020, end: 20101030
  3. WARFARIN SODIUM [Concomitant]
     Indication: PROPHYLAXIS
     Dosage: 2 MILLIGRAM
     Route: 048
     Dates: start: 20100913, end: 20100916
  4. NESPO [Concomitant]
     Dosage: 30 MICROGRAM
     Route: 058
     Dates: start: 20110128, end: 20110408
  5. REVLIMID [Suspect]
     Dosage: 10 MILLIGRAM
     Route: 048
     Dates: start: 20110115, end: 20110324
  6. ALOSENN [Concomitant]
     Indication: CONSTIPATION
     Dosage: .5 GRAM
     Route: 048
     Dates: start: 20100910
  7. CARVEDILOL [Concomitant]
     Indication: ANGINA PECTORIS
     Dosage: 5 MILLIGRAM
     Route: 048
     Dates: start: 20100910
  8. SIGMART [Concomitant]
     Indication: ANGINA PECTORIS
     Dosage: 10 MILLIGRAM
     Route: 048
     Dates: start: 20100910
  9. DEXAMETHASONE [Suspect]
     Dosage: 40 MILLIGRAM
     Route: 048
     Dates: start: 20101020, end: 20101023
  10. REVLIMID [Suspect]
     Indication: MULTIPLE MYELOMA
     Dosage: 15 MILLIGRAM
     Route: 048
     Dates: start: 20100910, end: 20100930
  11. REVLIMID [Suspect]
     Dosage: 10 MILLIGRAM
     Route: 048
     Dates: start: 20101117, end: 20110104
  12. HEPARIN SODIUM [Concomitant]
     Indication: PROPHYLAXIS
     Dosage: 10000 UNIT
     Route: 041
     Dates: start: 20100910, end: 20100916
  13. WARFARIN SODIUM [Concomitant]
     Dosage: 2 MILLIGRAM
     Route: 048
     Dates: start: 20100921, end: 20101004
  14. DEXAMETHASONE [Suspect]
     Indication: MULTIPLE MYELOMA
     Dosage: 40 MILLIGRAM
     Route: 048
     Dates: start: 20100926, end: 20100929
  15. DEXAMETHASONE [Suspect]
     Dosage: 20 MILLIGRAM
     Route: 048
     Dates: start: 20110115, end: 20110402
  16. LANSOPRAZOLE [Concomitant]
     Indication: PROPHYLAXIS
     Dosage: 15 MILLIGRAM
     Route: 048
     Dates: start: 20100910, end: 20101003
  17. SULFAMETHOXAZOLE [Concomitant]
     Indication: PROPHYLAXIS
     Dosage: .2 GRAM
     Route: 048
     Dates: start: 20100910
  18. WARFARIN SODIUM [Concomitant]
     Dosage: 2.5 MILLIGRAM
     Route: 048
     Dates: start: 20100917, end: 20100920
  19. DEXAMETHASONE [Suspect]
     Dosage: 20 MILLIGRAM
     Route: 048
     Dates: start: 20101117, end: 20101229
  20. DEXAMETHASONE SODIUM PHOSPHATE [Concomitant]
     Indication: MULTIPLE MYELOMA
     Dosage: 33 MILLIGRAM
     Route: 041
     Dates: start: 20100910, end: 20100921
  21. LANSOPRAZOLE [Concomitant]
     Dosage: 30 MILLIGRAM
     Route: 048
     Dates: start: 20101020
  22. BUFFERIN [Concomitant]
     Indication: ANGINA PECTORIS
     Dosage: 81 MILLIGRAM
     Route: 048
     Dates: start: 20100910, end: 20110228
  23. CONIEL [Concomitant]
     Indication: HYPERTENSION
     Dosage: 4 MILLIGRAM
     Route: 048
     Dates: start: 20100910, end: 20101019
  24. ASPIRIN [Concomitant]
     Indication: ANGINA PECTORIS
     Dosage: 100 MILLIGRAM
     Route: 048
     Dates: start: 20110115

REACTIONS (8)
  - PROTHROMBIN TIME PROLONGED [None]
  - PNEUMONIA [None]
  - NEUTROPENIA [None]
  - COUGH [None]
  - UPPER GASTROINTESTINAL HAEMORRHAGE [None]
  - PLATELET COUNT DECREASED [None]
  - THROMBOCYTOPENIA [None]
  - UPPER RESPIRATORY TRACT INFLAMMATION [None]
